FAERS Safety Report 13459674 (Version 1)
Quarter: 2017Q2

REPORT INFORMATION
  Report Type: Spontaneous
  Country: SE (occurrence: SE)
  Receive Date: 20170419
  Receipt Date: 20170419
  Transmission Date: 20170830
  Serious: Yes (Other)
  Sender: FDA-Public Use
  Company Number: SE-IPCA LABORATORIES LIMITED-IPC201704-000568

PATIENT
  Age: 73 Year
  Sex: Female

DRUGS (12)
  1. NORMORIX MITE [Suspect]
     Active Substance: AMILORIDE HYDROCHLORIDE\HYDROCHLOROTHIAZIDE
  2. ENALAPRIL [Suspect]
     Active Substance: ENALAPRIL
  3. TELMISARTAN. [Suspect]
     Active Substance: TELMISARTAN
  4. IPREN [Suspect]
     Active Substance: IBUPROFEN
  5. SPIRONOLACTONE. [Suspect]
     Active Substance: SPIRONOLACTONE
  6. PAPAVARINE [Suspect]
     Active Substance: PAPAVERINE
  7. VOLTAREN [Suspect]
     Active Substance: DICLOFENAC SODIUM
  8. CANDESARTAN. [Suspect]
     Active Substance: CANDESARTAN
  9. FLUCONAZOLE. [Suspect]
     Active Substance: FLUCONAZOLE
  10. DICLOFENAC [Suspect]
     Active Substance: DICLOFENAC
  11. NAPROXEN. [Suspect]
     Active Substance: NAPROXEN
  12. LOSARTAN. [Suspect]
     Active Substance: LOSARTAN

REACTIONS (5)
  - Feeling abnormal [Not Recovered/Not Resolved]
  - Headache [Not Recovered/Not Resolved]
  - Arthralgia [Not Recovered/Not Resolved]
  - Nausea [Not Recovered/Not Resolved]
  - Influenza like illness [Not Recovered/Not Resolved]
